FAERS Safety Report 6521072-4 (Version None)
Quarter: 2009Q4

REPORT INFORMATION
  Report Type: 
  Country: None (occurrence: None)
  Receive Date: 20091229
  Receipt Date: 20091218
  Transmission Date: 20100525
  Serious: Yes (Hospitalization)
  Sender: FDA-Public Use
  Company Number: US-ELI_LILLY_AND_COMPANY-US200912004443

PATIENT
  Age: 65 Year
  Sex: Female

DRUGS (7)
  1. CYMBALTA [Suspect]
     Indication: DEPRESSION
     Dosage: 30 MG, DAILY (1/D)
  2. FORTEO [Suspect]
     Indication: OSTEOPOROSIS
     Dosage: UNK, UNK
     Dates: start: 20090701
  3. VITAMIN D [Concomitant]
  4. CLONAZEPAM [Concomitant]
  5. METHADONE [Concomitant]
  6. HYDROCODONE [Concomitant]
  7. BACLOFEN [Concomitant]
     Dates: start: 20080501

REACTIONS (4)
  - ARTHRALGIA [None]
  - DRUG WITHDRAWAL SYNDROME [None]
  - OSTEOARTHRITIS [None]
  - PAIN IN EXTREMITY [None]
